FAERS Safety Report 11547844 (Version 2)
Quarter: 2015Q3

REPORT INFORMATION
  Report Type: Spontaneous
  Country: US (occurrence: US)
  Receive Date: 20150924
  Receipt Date: 20150929
  Transmission Date: 20151125
  Serious: Yes (Hospitalization)
  Sender: FDA-Public Use
  Company Number: US-ASTRAZENECA-2015SE90453

PATIENT
  Sex: Female

DRUGS (1)
  1. ATACAND GENERIC [Suspect]
     Active Substance: CANDESARTAN CILEXETIL
     Indication: BLOOD PRESSURE MEASUREMENT
     Route: 065

REACTIONS (5)
  - Hypertension [Unknown]
  - Intentional product misuse [Unknown]
  - Drug intolerance [Unknown]
  - Drug ineffective [Unknown]
  - Product substitution issue [Unknown]
